FAERS Safety Report 8014444-2 (Version None)
Quarter: 2011Q4

REPORT INFORMATION
  Report Type: 
  Country: None (occurrence: None)
  Receive Date: 20111229
  Receipt Date: 20111220
  Transmission Date: 20120403
  Serious: Yes (Other)
  Sender: FDA-Public Use
  Company Number: PHHY2011FR111488

PATIENT
  Sex: Male

DRUGS (5)
  1. VALSARTAN [Suspect]
     Dosage: UNK UKN, UNK
     Route: 048
     Dates: start: 20110805, end: 20111113
  2. ATORVASTATIN CALCIUM [Concomitant]
  3. NICERGOLINE [Concomitant]
  4. ASPIRIN [Concomitant]
  5. SINEMET [Suspect]
     Dosage: UNK UKN, UNK
     Route: 048
     Dates: start: 20110813, end: 20111102

REACTIONS (3)
  - EOSINOPHILIA [None]
  - PRURIGO [None]
  - NODULE [None]
